FAERS Safety Report 19109865 (Version 4)
Quarter: 2021Q2

REPORT INFORMATION
  Report Type: Report from Study
  Country: US (occurrence: US)
  Receive Date: 20210408
  Receipt Date: 20210521
  Transmission Date: 20210717
  Serious: Yes (Hospitalization, Other)
  Sender: FDA-Public Use
  Company Number: US-GILEAD-2021-0521299

PATIENT
  Age: 8 Year
  Sex: Male

DRUGS (5)
  1. WARFARIN [Concomitant]
     Active Substance: WARFARIN
  2. TADALAFIL. [Concomitant]
     Active Substance: TADALAFIL
  3. REMODULIN [Concomitant]
     Active Substance: TREPROSTINIL
  4. AMBRISENTAN [Suspect]
     Active Substance: AMBRISENTAN
     Indication: PULMONARY ARTERIAL HYPERTENSION
     Dosage: 5 MG, QD
     Route: 048
     Dates: start: 20200720
  5. OXYGEN. [Concomitant]
     Active Substance: OXYGEN

REACTIONS (4)
  - Seizure [Unknown]
  - Seizure [Unknown]
  - Infusion site erythema [Recovered/Resolved]
  - Dyspnoea [Not Recovered/Not Resolved]

NARRATIVE: CASE EVENT DATE: 20210328
